FAERS Safety Report 18044849 (Version 3)
Quarter: 2020Q3

REPORT INFORMATION
  Report Type: Spontaneous
  Country: ID (occurrence: ID)
  Receive Date: 20200720
  Receipt Date: 20200807
  Transmission Date: 20201103
  Serious: Yes (Death, Hospitalization, Other)
  Sender: FDA-Public Use
  Company Number: ID-PFIZER INC-2020274726

PATIENT
  Age: 28 Year
  Sex: Female

DRUGS (3)
  1. ZEBETA [Concomitant]
     Active Substance: BISOPROLOL FUMARATE
     Indication: CARDIAC DISORDER
     Dosage: 20 MG, 1X/DAY
     Route: 048
     Dates: end: 20200629
  2. AROMASIN [Suspect]
     Active Substance: EXEMESTANE
     Indication: BREAST CANCER
     Dosage: 25 MG, 1X/DAY
     Route: 048
     Dates: start: 2020, end: 20200629
  3. IBRANCE [Suspect]
     Active Substance: PALBOCICLIB
     Indication: BREAST CANCER
     Dosage: 125 MG, 1X/DAY
     Route: 048
     Dates: start: 2020, end: 20200629

REACTIONS (9)
  - Haemoglobin decreased [Recovering/Resolving]
  - Product use issue [Unknown]
  - Off label use [Unknown]
  - Cardiac disorder [Fatal]
  - Neoplasm progression [Fatal]
  - White blood cell count decreased [Unknown]
  - Tremor [Unknown]
  - Dyspnoea [Unknown]
  - Seizure [Unknown]

NARRATIVE: CASE EVENT DATE: 20200627
